FAERS Safety Report 6531833-3 (Version None)
Quarter: 2009Q4

REPORT INFORMATION
  Report Type: 
  Country: None (occurrence: None)
  Receive Date: 20091224
  Receipt Date: 20090922
  Transmission Date: 20100525
  Serious: Yes (Other)
  Sender: FDA-Public Use
  Company Number: AUR-APL-2009-00754

PATIENT
  Sex: Female

DRUGS (2)
  1. CITALOPRAM HYDROBROMIDE [Suspect]
  2. VIAGRA [Suspect]

REACTIONS (2)
  - FEELING ABNORMAL [None]
  - HALLUCINATION [None]
